FAERS Safety Report 6446097-9 (Version None)
Quarter: 2009Q4

REPORT INFORMATION
  Report Type: 
  Country: None (occurrence: None)
  Receive Date: 20091119
  Receipt Date: 20091111
  Transmission Date: 20100525
  Serious: Yes (Other)
  Sender: FDA-Public Use
  Company Number: US-JNJFOC-20091103726

PATIENT
  Age: 32 Year
  Sex: Male
  Weight: 63.5 kg

DRUGS (6)
  1. IMODIUM A-D [Suspect]
     Route: 048
     Dates: start: 20030101, end: 20091108
  2. IMODIUM A-D [Suspect]
     Indication: PROPHYLAXIS
     Route: 048
     Dates: start: 20030101, end: 20091108
  3. GENERIC IMODIUM [Suspect]
     Indication: PROPHYLAXIS
     Route: 065
  4. TOPROL-XL [Concomitant]
     Indication: ARRHYTHMIA
     Route: 065
  5. PRILOSEC [Concomitant]
     Indication: GASTROOESOPHAGEAL REFLUX DISEASE
     Route: 065
  6. LORAZEPAM [Concomitant]
     Indication: ANXIETY
     Route: 065

REACTIONS (4)
  - FEELING ABNORMAL [None]
  - INTENTIONAL DRUG MISUSE [None]
  - OVERDOSE [None]
  - WITHDRAWAL SYNDROME [None]
